FAERS Safety Report 12842608 (Version 1)
Quarter: 2016Q4

REPORT INFORMATION
  Report Type: Spontaneous
  Country: ES (occurrence: ES)
  Receive Date: 20161013
  Receipt Date: 20161013
  Transmission Date: 20170207
  Serious: Yes (Hospitalization, Other)
  Sender: FDA-Public Use
  Company Number: PHHY2016ES135442

PATIENT
  Sex: Male

DRUGS (1)
  1. ENTRESTO [Suspect]
     Active Substance: SACUBITRIL\VALSARTAN
     Indication: MITRAL VALVE INCOMPETENCE
     Dosage: 50 MG, BID
     Route: 048

REACTIONS (2)
  - Hypertensive crisis [Unknown]
  - Acute pulmonary oedema [Recovered/Resolved]
